FAERS Safety Report 23512955 (Version 1)
Quarter: 2024Q1

REPORT INFORMATION
  Report Type: Spontaneous
  Country: GB (occurrence: GB)
  Receive Date: 20240212
  Receipt Date: 20240212
  Transmission Date: 20240410
  Serious: Yes (Hospitalization)
  Sender: FDA-Public Use
  Company Number: GB-MYLANLABS-2023M1103146

PATIENT
  Age: 48 Year
  Sex: Male

DRUGS (1)
  1. CLOZARIL [Suspect]
     Active Substance: CLOZAPINE
     Indication: Schizophrenia
     Dosage: UNK
     Route: 048
     Dates: start: 20040507, end: 20240118

REACTIONS (7)
  - Abdominal distension [Unknown]
  - Constipation [Unknown]
  - Rhabdomyolysis [Unknown]
  - COVID-19 pneumonia [Unknown]
  - Pneumonia [Unknown]
  - Acute kidney injury [Unknown]
  - Eosinophilia [Unknown]

NARRATIVE: CASE EVENT DATE: 20240117
